FAERS Safety Report 18258939 (Version 3)
Quarter: 2020Q4

REPORT INFORMATION
  Report Type: Spontaneous
  Country: US (occurrence: US)
  Receive Date: 20200911
  Receipt Date: 20201015
  Transmission Date: 20210113
  Serious: Yes (Hospitalization)
  Sender: FDA-Public Use
  Company Number: US-JNJFOC-A-US2020-207671

PATIENT
  Age: 67 Year
  Sex: Male
  Weight: 92.97 kg

DRUGS (3)
  1. VELETRI [Suspect]
     Active Substance: EPOPROSTENOL
     Dosage: 50 NG/KG, PER MIN
     Route: 042
  2. VELETRI [Suspect]
     Active Substance: EPOPROSTENOL
     Indication: PULMONARY ARTERIAL HYPERTENSION
     Dosage: 48 NG/KG, PER MIN
     Route: 042
  3. ADEMPAS [Concomitant]
     Active Substance: RIOCIGUAT

REACTIONS (7)
  - Hallucination [Unknown]
  - Small intestinal obstruction [Unknown]
  - Immobile [Unknown]
  - Intestinal operation [Unknown]
  - Lethargy [Unknown]
  - Surgery [Unknown]
  - Asthenia [Unknown]

NARRATIVE: CASE EVENT DATE: 20200827
